FAERS Safety Report 4363941-X (Version None)
Quarter: 2004Q2

REPORT INFORMATION
  Report Type: 
  Country: None (occurrence: None)
  Receive Date: 20040521
  Receipt Date: 20040521
  Transmission Date: 20050107
  Serious: Yes (Life-Threatening, Hospitalization)
  Sender: FDA-Public Use
  Company Number: None

PATIENT
  Age: 24 Year
  Sex: Female
  Weight: 87.5 kg

DRUGS (14)
  1. GAMMAGARD S/D [Suspect]
     Indication: DEMYELINATING POLYNEUROPATHY
     Dosage: 0.5 GM/KG DAILY X 2 INTRAVENOUS
     Route: 042
     Dates: start: 20040413, end: 20040414
  2. GAMMAGARD S/D [Suspect]
     Indication: INFLAMMATION
     Dosage: 0.5 GM/KG DAILY X 2 INTRAVENOUS
     Route: 042
     Dates: start: 20040413, end: 20040414
  3. GAMMAGARD S/D [Suspect]
     Dosage: 10 GM
  4. LEXAPRO [Concomitant]
  5. TRILEPTAL [Concomitant]
  6. CONTIN [Concomitant]
  7. METOCLOPRAMIDE [Concomitant]
  8. DOXEPIN HCL [Concomitant]
  9. AMBIEN [Concomitant]
  10. VICODIN [Concomitant]
  11. NEURONTIN [Concomitant]
  12. PREDNISONE [Concomitant]
  13. DIPHENHYDRAMINE HCL [Concomitant]
  14. GAMUNEX [Concomitant]

REACTIONS (1)
  - PULMONARY EMBOLISM [None]
